FAERS Safety Report 22537898 (Version 3)
Quarter: 2023Q2

REPORT INFORMATION
  Report Type: Spontaneous
  Country: BR (occurrence: BR)
  Receive Date: 20230608
  Receipt Date: 20230616
  Transmission Date: 20230721
  Serious: Yes (Life-Threatening, Other)
  Sender: FDA-Public Use
  Company Number: BR-002147023-NVSC2023BR130763

PATIENT
  Age: 40 Year
  Sex: Male

DRUGS (2)
  1. HYRIMOZ [Suspect]
     Active Substance: ADALIMUMAB-ADAZ
     Indication: Uveitis
     Dosage: 2 DOSAGE FORM, Q2W (2 SYRINGES EVERY 14 DAYS)
     Route: 065
     Dates: start: 202301
  2. HYRIMOZ [Suspect]
     Active Substance: ADALIMUMAB-ADAZ
     Dosage: 2 DOSAGE FORM, Q2W (2 SYRINGES EVERY 14 DAYS) (MANUFACTURED ON 02 AUG 2022)
     Route: 065
     Dates: start: 20230611

REACTIONS (7)
  - Feeling abnormal [Not Recovered/Not Resolved]
  - Cataract [Unknown]
  - Injection site pain [Not Recovered/Not Resolved]
  - Visual impairment [Not Recovered/Not Resolved]
  - Eye inflammation [Not Recovered/Not Resolved]
  - Eye swelling [Not Recovered/Not Resolved]
  - Drug ineffective [Not Recovered/Not Resolved]

NARRATIVE: CASE EVENT DATE: 20230101
